FAERS Safety Report 10328168 (Version 1)
Quarter: 2014Q3

REPORT INFORMATION
  Report Type: Spontaneous
  Country: US (occurrence: None)
  Receive Date: 20140716
  Receipt Date: 20140716
  Transmission Date: 20150326
  Serious: Yes (Hospitalization)
  Sender: FDA-Public Use
  Company Number: None

PATIENT
  Age: 3 Year
  Sex: Female
  Weight: 12.7 kg

DRUGS (1)
  1. VINCRISTINE SULFATE. [Suspect]
     Active Substance: VINCRISTINE SULFATE

REACTIONS (6)
  - Pyrexia [None]
  - Neutropenia [None]
  - Anaemia [None]
  - White blood cell count decreased [None]
  - Pain [None]
  - Nausea [None]

NARRATIVE: CASE EVENT DATE: 20140711
